FAERS Safety Report 24954277 (Version 1)
Quarter: 2025Q1

REPORT INFORMATION
  Report Type: Report from Study
  Country: US (occurrence: US)
  Receive Date: 20250211
  Receipt Date: 20250211
  Transmission Date: 20250409
  Serious: No
  Sender: ROCHE
  Company Number: US-ROCHE-10000197500

PATIENT
  Age: 60 Year
  Sex: Female

DRUGS (13)
  1. OCREVUS [Suspect]
     Active Substance: OCRELIZUMAB
     Indication: Multiple sclerosis
     Route: 065
     Dates: start: 20170117
  2. COTELLIC [Suspect]
     Active Substance: COBIMETINIB FUMARATE
     Indication: Metabolic disorder
     Dosage: DAY 1-21 DAYS WITH 7 DAYS OFF
     Route: 048
     Dates: start: 20250124
  3. COTELLIC [Suspect]
     Active Substance: COBIMETINIB FUMARATE
     Dosage: DAY 1-21 DAYS WITH 7 DAYS OFF
     Route: 048
     Dates: start: 20190524
  4. COTELLIC [Suspect]
     Active Substance: COBIMETINIB FUMARATE
     Route: 048
  5. ZELBORAF [Suspect]
     Active Substance: VEMURAFENIB
     Indication: Product used for unknown indication
     Route: 065
     Dates: start: 20190107
  6. ZELBORAF [Suspect]
     Active Substance: VEMURAFENIB
     Route: 065
     Dates: start: 20190214, end: 20190315
  7. DESMOPRESSIN [Concomitant]
     Active Substance: DESMOPRESSIN
  8. DULOXETINE [Concomitant]
     Active Substance: DULOXETINE
  9. ESTRADIOL [Concomitant]
     Active Substance: ESTRADIOL
  10. FOSFOMYCIN [Concomitant]
     Active Substance: FOSFOMYCIN
  11. RABEPRAZOLE [Concomitant]
     Active Substance: RABEPRAZOLE
  12. ROSUVASTATIN [Concomitant]
     Active Substance: ROSUVASTATIN
  13. TRIMETHOPRIM [Concomitant]
     Active Substance: TRIMETHOPRIM

REACTIONS (11)
  - Magnetic resonance imaging abnormal [Unknown]
  - Palmar-plantar erythrodysaesthesia syndrome [Unknown]
  - Hydronephrosis [Unknown]
  - Duodenal ulcer [Unknown]
  - Fall [Unknown]
  - Inflammatory bowel disease [Unknown]
  - Iron deficiency anaemia [Unknown]
  - Escherichia bacteraemia [Unknown]
  - Urinary tract infection [Unknown]
  - Skin toxicity [Unknown]
  - Acrochordon [Unknown]
